FAERS Safety Report 16760605 (Version 1)
Quarter: 2019Q4

REPORT INFORMATION
  Report Type: Spontaneous
  Country: US (occurrence: US)
  Receive Date: 20190830
  Receipt Date: 20190830
  Transmission Date: 20200122
  Serious: Yes (Life-Threatening)
  Sender: FDA-Public Use
  Company Number: None

PATIENT
  Age: 72 Year
  Sex: Male
  Weight: 78 kg

DRUGS (1)
  1. CAMPATH [Suspect]
     Active Substance: ALEMTUZUMAB
     Indication: PRODUCT USED FOR UNKNOWN INDICATION
     Dosage: ?          OTHER FREQUENCY:THREE TIMES WEEKLY;?
     Route: 041
     Dates: start: 20190802, end: 20190802

REACTIONS (3)
  - Infusion related reaction [None]
  - Anaphylactic reaction [None]
  - Therapy change [None]

NARRATIVE: CASE EVENT DATE: 20190802
